FAERS Safety Report 21269840 (Version 1)
Quarter: 2022Q3

REPORT INFORMATION
  Report Type: Spontaneous
  Country: AR (occurrence: AR)
  Receive Date: 20220830
  Receipt Date: 20220830
  Transmission Date: 20221026
  Serious: Yes (Other)
  Sender: FDA-Public Use
  Company Number: AR-PFIZER INC-PV202200051629

PATIENT
  Age: 65 Year
  Sex: Female
  Weight: 79 kg

DRUGS (3)
  1. IBRANCE [Suspect]
     Active Substance: PALBOCICLIB
     Dosage: 75 MG, CYCLIC (DAILY FOR 21 DAYS EVERY 28 DAYS)
  2. FEMARA [Concomitant]
     Active Substance: LETROZOLE
     Dosage: 2.5 MG, DAILY
  3. PAMIDRONIC ACID [Concomitant]
     Active Substance: PAMIDRONIC ACID
     Dosage: 90 MG, EVERY 28 DAYS
     Route: 042

REACTIONS (17)
  - Porcelain gallbladder [Unknown]
  - Neoplasm progression [Unknown]
  - Biliary cyst [Unknown]
  - Vascular calcification [Unknown]
  - Degenerative bone disease [Unknown]
  - Blood cholesterol increased [Unknown]
  - Low density lipoprotein increased [Unknown]
  - High density lipoprotein decreased [Unknown]
  - Lymphocyte percentage increased [Unknown]
  - Mean cell haemoglobin increased [Unknown]
  - Mean cell volume increased [Unknown]
  - Monocyte percentage increased [Unknown]
  - Neutrophil count decreased [Unknown]
  - Neutrophil percentage decreased [Unknown]
  - Red blood cell count decreased [Unknown]
  - Total cholesterol/HDL ratio increased [Unknown]
  - White blood cell count decreased [Unknown]

NARRATIVE: CASE EVENT DATE: 20200831
